FAERS Safety Report 8433603-8 (Version None)
Quarter: 2012Q2

REPORT INFORMATION
  Report Type: 
  Country: None (occurrence: None)
  Receive Date: 20120323
  Receipt Date: 20111201
  Transmission Date: 20120825
  Serious: Yes (Other)
  Sender: FDA-Public Use
  Company Number: 163-21880-11071465

PATIENT
  Age: 53 Year
  Sex: Female
  Weight: 53.64 kg

DRUGS (11)
  1. LEXAPRO [Concomitant]
  2. ZOFRAN [Concomitant]
  3. SPIRONOLACTONE [Concomitant]
  4. PREMPRO [Concomitant]
  5. ZYRTEC [Concomitant]
  6. FLONASE [Concomitant]
  7. ZOMETA [Concomitant]
  8. REVLIMID [Suspect]
     Indication: MULTIPLE MYELOMA
     Dosage: 25 MG, DAILY X 21 DAYS/OFF 7 DAYS, PO : 15 MG 1 IN 1 D, PO : 10 MG, DAILY FOR 21 DAYS, OFF 7 DAYS, P
     Route: 048
     Dates: start: 20110421, end: 20110101
  9. REVLIMID [Suspect]
     Indication: MULTIPLE MYELOMA
     Dosage: 25 MG, DAILY X 21 DAYS/OFF 7 DAYS, PO : 15 MG 1 IN 1 D, PO : 10 MG, DAILY FOR 21 DAYS, OFF 7 DAYS, P
     Route: 048
     Dates: start: 20100517, end: 20110725
  10. REVLIMID [Suspect]
     Indication: MULTIPLE MYELOMA
     Dosage: 25 MG, DAILY X 21 DAYS/OFF 7 DAYS, PO : 15 MG 1 IN 1 D, PO : 10 MG, DAILY FOR 21 DAYS, OFF 7 DAYS, P
     Route: 048
     Dates: start: 20100901, end: 20110101
  11. ANTI-DIARRHEAL (LOPERAMIDE HYDROCHLORIDE) [Concomitant]

REACTIONS (3)
  - PLATELET COUNT DECREASED [None]
  - BONE MARROW FAILURE [None]
  - HAEMOGLOBIN DECREASED [None]
